FAERS Safety Report 4395411-7 (Version None)
Quarter: 2004Q3

REPORT INFORMATION
  Report Type: 
  Country: None (occurrence: None)
  Receive Date: 20040712
  Receipt Date: 20040712
  Transmission Date: 20050211
  Serious: No
  Sender: FDA-Public Use
  Company Number: None

PATIENT
  Sex: Male
  Weight: 61.2356 kg

DRUGS (1)
  1. TIGER BALM OINTMENT [Suspect]
     Dates: start: 20040628, end: 20040628

REACTIONS (3)
  - APPLICATION SITE REACTION [None]
  - BURNS THIRD DEGREE [None]
  - CHEMICAL BURN OF SKIN [None]
